FAERS Safety Report 7088747-2 (Version None)
Quarter: 2010Q4

REPORT INFORMATION
  Report Type: 
  Country: None (occurrence: None)
  Receive Date: 20101108
  Receipt Date: 20101012
  Transmission Date: 20110411
  Serious: No
  Sender: FDA-Public Use
  Company Number: US-BAYER-201036705NA

PATIENT
  Age: 24 Year
  Sex: Female

DRUGS (1)
  1. MIRENA [Suspect]
     Indication: CONTRACEPTION
     Dosage: FREQUENCY CONTINUOUS
     Route: 015
     Dates: start: 20090701

REACTIONS (4)
  - ABNORMAL WEIGHT GAIN [None]
  - DEPRESSION [None]
  - FEELING ABNORMAL [None]
  - PREGNANCY WITH CONTRACEPTIVE DEVICE [None]
